FAERS Safety Report 14671091 (Version 1)
Quarter: 2018Q1

REPORT INFORMATION
  Report Type: Spontaneous
  Country: US (occurrence: US)
  Receive Date: 20180322
  Receipt Date: 20180322
  Transmission Date: 20180509
  Serious: No
  Sender: FDA-Public Use
  Company Number: None

PATIENT
  Age: 61 Year
  Sex: Female

DRUGS (1)
  1. AMPYRA [Suspect]
     Active Substance: DALFAMPRIDINE
     Indication: MULTIPLE SCLEROSIS
     Route: 048
     Dates: start: 20180218

REACTIONS (6)
  - Micturition urgency [None]
  - Urine odour abnormal [None]
  - White blood cells urine positive [None]
  - Urinary tract infection [None]
  - Dysuria [None]
  - Pollakiuria [None]

NARRATIVE: CASE EVENT DATE: 20180226
